FAERS Safety Report 11267624 (Version 3)
Quarter: 2015Q3

REPORT INFORMATION
  Report Type: Spontaneous
  Country: US (occurrence: US)
  Receive Date: 20150713
  Receipt Date: 20150820
  Transmission Date: 20151125
  Serious: Yes (Other)
  Sender: FDA-Public Use
  Company Number: US-GLAXOSMITHKLINE-US2015GSK099455

PATIENT
  Age: 75 Year
  Sex: Female

DRUGS (16)
  1. VOTRIENT [Suspect]
     Active Substance: PAZOPANIB HYDROCHLORIDE
     Dosage: 800 MG, QD
     Dates: start: 20150706
  2. VOTRIENT [Suspect]
     Active Substance: PAZOPANIB HYDROCHLORIDE
     Dosage: 800 MG, QD
     Dates: start: 20150713
  3. AMLODIPINE [Concomitant]
     Active Substance: AMLODIPINE BESYLATE
  4. POTASSIUM CHLORIDE. [Concomitant]
     Active Substance: POTASSIUM CHLORIDE
  5. TRIAMCINOLONE [Concomitant]
     Active Substance: TRIAMCINOLONE
  6. VOTRIENT [Suspect]
     Active Substance: PAZOPANIB HYDROCHLORIDE
     Indication: RENAL CANCER
     Dosage: 800 MG, QD
     Dates: start: 20150515, end: 20150608
  7. VOTRIENT [Suspect]
     Active Substance: PAZOPANIB HYDROCHLORIDE
     Dosage: 400 MG, QD
     Dates: start: 20150622, end: 20150629
  8. VITAMIN C [Concomitant]
     Active Substance: ASCORBIC ACID
  9. LISINOPRIL. [Concomitant]
     Active Substance: LISINOPRIL
  10. VITAMIN D [Concomitant]
     Active Substance: CHOLECALCIFEROL
  11. METRONIDAZOLE. [Concomitant]
     Active Substance: METRONIDAZOLE
  12. VOTRIENT [Suspect]
     Active Substance: PAZOPANIB HYDROCHLORIDE
     Dosage: 600 MG, QD
     Dates: start: 20150629, end: 20150706
  13. PENLAC [Concomitant]
     Active Substance: CICLOPIROX
  14. FUROSEMIDE. [Concomitant]
     Active Substance: FUROSEMIDE
  15. ASPIRIN. [Concomitant]
     Active Substance: ASPIRIN
  16. RANITIDINE HYDROCHLORIDE. [Concomitant]
     Active Substance: RANITIDINE HYDROCHLORIDE

REACTIONS (6)
  - Lactose intolerance [Not Recovered/Not Resolved]
  - Hypertension [Recovered/Resolved]
  - Fatigue [Unknown]
  - Diarrhoea [Recovering/Resolving]
  - Transient ischaemic attack [Recovered/Resolved]
  - Flatulence [Recovering/Resolving]

NARRATIVE: CASE EVENT DATE: 20150607
